FAERS Safety Report 8018340-6 (Version None)
Quarter: 2012Q1

REPORT INFORMATION
  Report Type: 
  Country: None (occurrence: None)
  Receive Date: 20120103
  Receipt Date: 20111228
  Transmission Date: 20120608
  Serious: Yes (Other)
  Sender: FDA-Public Use
  Company Number: US-JNJFOC-20111200117

PATIENT
  Sex: Female
  Weight: 48.99 kg

DRUGS (12)
  1. LUMIGAN [Concomitant]
     Indication: GLAUCOMA
     Route: 031
     Dates: start: 20020101
  2. FISH OIL [Concomitant]
     Indication: NUTRITIONAL SUPPORT
     Route: 048
  3. ELMIRON [Suspect]
     Indication: CYSTITIS INTERSTITIAL
     Route: 048
     Dates: start: 20090501
  4. LEVEMIR [Concomitant]
     Indication: DIABETES MELLITUS
     Route: 058
     Dates: start: 20060101
  5. BETIMOL [Concomitant]
     Indication: GLAUCOMA
     Route: 031
     Dates: start: 20020101
  6. TRICOR [Concomitant]
     Indication: BLOOD CHOLESTEROL ABNORMAL
     Route: 048
  7. ZOCOR [Concomitant]
     Indication: BLOOD CHOLESTEROL ABNORMAL
     Route: 048
  8. ALPHAGAN P [Concomitant]
     Indication: GLAUCOMA
     Route: 031
  9. PRILOSEC [Concomitant]
     Indication: ABDOMINAL DISCOMFORT
     Route: 048
  10. NOVOLOG [Concomitant]
     Indication: DIABETES MELLITUS
     Route: 058
     Dates: start: 20060101
  11. VITAMIN D [Concomitant]
     Dosage: 2000 UNITS ONCE ON TUESDAY, THURSDAY, SATURDAY AND SUNDAY
     Route: 048
  12. VITAMIN D [Concomitant]
     Indication: NUTRITIONAL SUPPORT
     Dosage: 3000 UNITS ONCE ON MONDAY, WEDNESDAY AND FRIDAY
     Route: 048

REACTIONS (4)
  - GLAUCOMA [None]
  - EYE DISORDER [None]
  - DRUG PRESCRIBING ERROR [None]
  - ASTHMA [None]
